FAERS Safety Report 6440961-2 (Version None)
Quarter: 2009Q4

REPORT INFORMATION
  Report Type: 
  Country: None (occurrence: None)
  Receive Date: 20091116
  Receipt Date: 20091110
  Transmission Date: 20100525
  Serious: Yes (Other)
  Sender: FDA-Public Use
  Company Number: ES-ROCHE-664716

PATIENT
  Age: 73 Year
  Sex: Female

DRUGS (1)
  1. XELODA [Suspect]
     Indication: COLON CANCER
     Dosage: RECEIVED 8 CYCLES
     Route: 065
     Dates: start: 20050801, end: 20060401

REACTIONS (2)
  - DIARRHOEA [None]
  - METASTASES TO LIVER [None]
